FAERS Safety Report 13254489 (Version 1)
Quarter: 2017Q1

REPORT INFORMATION
  Report Type: Spontaneous
  Country: GB (occurrence: GB)
  Receive Date: 20170221
  Receipt Date: 20170221
  Transmission Date: 20170428
  Serious: Yes (Other)
  Sender: FDA-Public Use
  Company Number: GB-ACCORD-048282

PATIENT
  Age: 63 Year
  Sex: Male
  Weight: 105 kg

DRUGS (4)
  1. RAMIPRIL. [Suspect]
     Active Substance: RAMIPRIL
     Indication: PRODUCT USED FOR UNKNOWN INDICATION
     Dates: start: 20160817
  2. ATORVASTATIN [Concomitant]
     Active Substance: ATORVASTATIN
     Dates: start: 20160331
  3. AMLODIPINE [Concomitant]
     Active Substance: AMLODIPINE BESYLATE
     Dates: start: 20160608
  4. FEXOFENADINE/FEXOFENADINE HYDROCHLORIDE [Concomitant]
     Dates: start: 20161104, end: 20161204

REACTIONS (4)
  - Dermatitis allergic [Recovered/Resolved]
  - Lip swelling [Recovered/Resolved]
  - Pruritus [Unknown]
  - Skin lesion [Unknown]

NARRATIVE: CASE EVENT DATE: 20170126
